FAERS Safety Report 23580497 (Version 1)
Quarter: 2024Q1

REPORT INFORMATION
  Report Type: Spontaneous
  Country: US (occurrence: US)
  Receive Date: 20240229
  Receipt Date: 20240229
  Transmission Date: 20240410
  Serious: No
  Sender: FDA-Public Use
  Company Number: US-MYLANLABS-2024M1013979

PATIENT
  Age: 60 Year
  Sex: Female

DRUGS (2)
  1. FENTANYL TRANSDERMAL SYSTEM [Suspect]
     Active Substance: FENTANYL
     Indication: Product used for unknown indication
     Dosage: UNK, EVERY 72 HOURS
     Route: 062
  2. DEVICE\POLYURETHANE [Concomitant]
     Active Substance: DEVICE\POLYURETHANE
     Dosage: UNK
     Route: 065

REACTIONS (9)
  - Feeling abnormal [Unknown]
  - Pain [Unknown]
  - Muscle spasms [Unknown]
  - Abdominal discomfort [Unknown]
  - Headache [Unknown]
  - Diarrhoea [Unknown]
  - Drug ineffective [Unknown]
  - Product adhesion issue [Unknown]
  - Wrong technique in product usage process [Unknown]
